FAERS Safety Report 7210553-6 (Version None)
Quarter: 2011Q1

REPORT INFORMATION
  Report Type: 
  Country: None (occurrence: None)
  Receive Date: 20110105
  Receipt Date: 20101231
  Transmission Date: 20110831
  Serious: Yes (Hospitalization, Other)
  Sender: FDA-Public Use
  Company Number: GB-AMGEN-QUU443736

PATIENT

DRUGS (2)
  1. NEUPOGEN [Suspect]
     Indication: NEUTROPENIA
     Dosage: 300 A?G, 3 TIMES/WK
     Route: 058
     Dates: start: 19940101, end: 20101101
  2. PHENOXYMETHYLPENICILLIN [Concomitant]
     Dosage: 250 MG, BID

REACTIONS (2)
  - INTERSTITIAL LUNG DISEASE [None]
  - ADVERSE REACTION [None]
